FAERS Safety Report 15644988 (Version 1)
Quarter: 2018Q4

REPORT INFORMATION
  Report Type: Spontaneous
  Country: US (occurrence: US)
  Receive Date: 20181121
  Receipt Date: 20181121
  Transmission Date: 20190205
  Serious: Yes (Hospitalization)
  Sender: FDA-Public Use
  Company Number: US-SHIRE-US201844930

PATIENT
  Age: 10 Year
  Sex: Male

DRUGS (1)
  1. GAMMAGARD LIQUID [Suspect]
     Active Substance: HUMAN IMMUNOGLOBULIN G
     Indication: IMMUNE SYSTEM DISORDER
     Dosage: 30 G, UNKNOWN
     Route: 042
     Dates: start: 20181106, end: 20181106

REACTIONS (3)
  - Headache [Unknown]
  - Vomiting [Unknown]
  - Nausea [Unknown]
